FAERS Safety Report 8119819 (Version 3)
Quarter: 2014Q3

REPORT INFORMATION
  Report Type: Spontaneous
  Country: US (occurrence: US)
  Receive Date: 20110902
  Receipt Date: 20140812
  Transmission Date: 20150326
  Serious: Yes (Other)
  Sender: FDA-Public Use
  Company Number: US-ASTRAZENECA-2011SE51254

PATIENT
  Age: 66 Year
  Sex: Female
  Weight: 56.7 kg

DRUGS (3)
  1. NEXIUM [Suspect]
     Active Substance: ESOMEPRAZOLE MAGNESIUM
     Route: 048
  2. OTHER MEDICATIONS [Concomitant]
     Active Substance: UNSPECIFIED INGREDIENT
  3. SYMBICORT [Suspect]
     Active Substance: BUDESONIDE\FORMOTEROL FUMARATE DIHYDRATE
     Indication: CHRONIC OBSTRUCTIVE PULMONARY DISEASE
     Dosage: 160/4.5, 2 PUFFS BID
     Route: 055
     Dates: end: 2014

REACTIONS (7)
  - Weight decreased [Not Recovered/Not Resolved]
  - Drug dose omission [Not Recovered/Not Resolved]
  - Open fracture [Unknown]
  - Decreased appetite [Unknown]
  - Systemic lupus erythematosus [Unknown]
  - Malaise [Unknown]
  - Circumstance or information capable of leading to medication error [Unknown]

NARRATIVE: CASE EVENT DATE: 2014
